FAERS Safety Report 16310394 (Version 14)
Quarter: 2020Q1

REPORT INFORMATION
  Report Type: Spontaneous
  Country: US (occurrence: US)
  Receive Date: 20190514
  Receipt Date: 20200325
  Transmission Date: 20200409
  Serious: Yes (Hospitalization, Other)
  Sender: FDA-Public Use
  Company Number: US-ACTELION-A-NJ2019-189316

PATIENT
  Age: 80 Year
  Sex: Female
  Weight: 73.47 kg

DRUGS (7)
  1. ELIQUIS [Concomitant]
     Active Substance: APIXABAN
  2. OPSUMIT [Suspect]
     Active Substance: MACITENTAN
     Indication: PULMONARY ARTERIAL HYPERTENSION
     Dosage: 10 MG, QD
     Route: 048
     Dates: start: 20190403
  3. FOLIC ACID. [Suspect]
     Active Substance: FOLIC ACID
     Indication: HAEMOGLOBIN DECREASED
     Route: 065
  4. PROCRIT [Suspect]
     Active Substance: ERYTHROPOIETIN
     Indication: PRODUCT USED FOR UNKNOWN INDICATION
     Route: 051
  5. IRON [Suspect]
     Active Substance: IRON
     Indication: HAEMOGLOBIN DECREASED
     Route: 065
  6. ADEMPAS [Suspect]
     Active Substance: RIOCIGUAT
     Indication: PRODUCT USED FOR UNKNOWN INDICATION
     Route: 048
  7. LASIX [Concomitant]
     Active Substance: FUROSEMIDE
     Dosage: 40 MG, QD
     Dates: start: 201903, end: 20190412

REACTIONS (17)
  - Vomiting [Recovered/Resolved]
  - Lethargy [Recovered/Resolved]
  - Nausea [Unknown]
  - Fatigue [Unknown]
  - Migraine [Unknown]
  - Transfusion [Unknown]
  - Hospitalisation [Unknown]
  - Feeling abnormal [Not Recovered/Not Resolved]
  - Myelodysplastic syndrome [Unknown]
  - Red blood cell count decreased [Unknown]
  - Pneumonia [Unknown]
  - Infusion site pain [Unknown]
  - Headache [Recovering/Resolving]
  - Epistaxis [Recovered/Resolved]
  - Haemoglobin decreased [Unknown]
  - Diarrhoea [Unknown]
  - Rash papular [Unknown]

NARRATIVE: CASE EVENT DATE: 201904
